FAERS Safety Report 4768702-5 (Version None)
Quarter: 2005Q3

REPORT INFORMATION
  Report Type: 
  Country: None (occurrence: None)
  Receive Date: 20050914
  Receipt Date: 20050530
  Transmission Date: 20060218
  Serious: Yes (Hospitalization, Other)
  Sender: FDA-Public Use
  Company Number: US-GLAXOSMITHKLINE-A0560860A

PATIENT
  Age: 33 Year
  Sex: Male
  Weight: 75 kg

DRUGS (3)
  1. IMITREX [Suspect]
     Indication: MIGRAINE
     Route: 048
     Dates: start: 20000101, end: 20050115
  2. IMITREX [Suspect]
     Route: 065
     Dates: end: 20050115
  3. NORTRIPTYLINE HCL [Concomitant]
     Indication: MIGRAINE
     Dates: start: 20000101

REACTIONS (9)
  - BALANCE DISORDER [None]
  - BRAIN STEM INFARCTION [None]
  - CEREBRAL VASOCONSTRICTION [None]
  - COORDINATION ABNORMAL [None]
  - DYSARTHRIA [None]
  - FAT EMBOLISM [None]
  - ISCHAEMIC STROKE [None]
  - SPEECH DISORDER [None]
  - VISION BLURRED [None]
